FAERS Safety Report 4384962-7 (Version None)
Quarter: 2004Q2

REPORT INFORMATION
  Report Type: 
  Country: None (occurrence: None)
  Receive Date: 20040623
  Receipt Date: 20040623
  Transmission Date: 20050107
  Serious: No
  Sender: FDA-Public Use
  Company Number: None

PATIENT
  Age: 67 Year
  Sex: Male
  Weight: 125.1928 kg

DRUGS (5)
  1. ENBREL [Suspect]
     Indication: FELTY'S SYNDROME
     Dosage: 25MG 2X WK
     Route: 058
  2. ENBREL [Suspect]
     Indication: RHEUMATOID ARTHRITIS
     Dosage: 25MG 2X WK
     Route: 058
  3. PREDNISONE [Concomitant]
  4. FOSAMAX [Concomitant]
  5. CALCIUM [Concomitant]

REACTIONS (1)
  - PANCYTOPENIA [None]
